FAERS Safety Report 9650296 (Version 1)
Quarter: 2013Q4

REPORT INFORMATION
  Report Type: Spontaneous
  Country: US (occurrence: US)
  Receive Date: 20131028
  Receipt Date: 20131028
  Transmission Date: 20140711
  Serious: Yes (Other)
  Sender: FDA-Public Use
  Company Number: US-NAPPMUNDI-USA-2013-0099730

PATIENT
  Age: 25 Year
  Sex: Male

DRUGS (7)
  1. OXYCODONE HYDROCHLORIDE (SIMILAR TO NDA 22-272) [Suspect]
     Indication: DRUG ABUSE
  2. METHAMPHETAMINE [Suspect]
     Indication: DRUG ABUSE
     Route: 048
  3. METHADONE [Suspect]
     Indication: DRUG ABUSE
     Route: 048
  4. OXYMORPHINE [Suspect]
     Indication: DRUG ABUSE
     Route: 048
  5. PSEUDOEPHEDRINE [Suspect]
     Indication: DRUG ABUSE
     Route: 048
  6. AMPHETAMINE [Suspect]
     Indication: DRUG ABUSE
     Route: 048
  7. ALPRAZOLAM [Suspect]
     Indication: DRUG ABUSE
     Route: 048

REACTIONS (3)
  - Drug abuse [Unknown]
  - Road traffic accident [Unknown]
  - Impaired driving ability [Unknown]
